FAERS Safety Report 9276737 (Version 2)
Quarter: 2013Q3

REPORT INFORMATION
  Report Type: Report from Study
  Country: US (occurrence: US)
  Receive Date: 20130507
  Receipt Date: 20130716
  Transmission Date: 20140515
  Serious: Yes (Hospitalization)
  Sender: FDA-Public Use
  Company Number: US-ELI_LILLY_AND_COMPANY-US201302003278

PATIENT
  Age: 83 Year
  Sex: Female

DRUGS (3)
  1. TERIPARATIDE [Suspect]
     Indication: OSTEOPOROSIS
     Dosage: UNK, QD
     Dates: start: 20121210
  2. TERIPARATIDE [Suspect]
     Dosage: UNK, QD
     Dates: start: 20121210
  3. TERIPARATIDE [Suspect]
     Dosage: UNK, QD
     Dates: start: 20121210

REACTIONS (3)
  - Abdominal pain upper [Unknown]
  - Asthenia [Unknown]
  - Underdose [Unknown]
